FAERS Safety Report 22702226 (Version 9)
Quarter: 2024Q2

REPORT INFORMATION
  Report Type: Report from Study
  Country: CN (occurrence: CN)
  Receive Date: 20230713
  Receipt Date: 20240508
  Transmission Date: 20240716
  Serious: Yes (Other)
  Sender: FDA-Public Use
  Company Number: CN-FOSUNKITE-FOSUNKITE-20230728

PATIENT
  Age: 41 Year
  Sex: Male

DRUGS (5)
  1. AXICABTAGENE CILOLEUCEL [Suspect]
     Active Substance: AXICABTAGENE CILOLEUCEL
     Indication: Non-Hodgkin^s lymphoma
     Dosage: 1.5?10^8 (NUMBER OF CAR-T CELLS)
     Route: 042
     Dates: start: 20230328, end: 20230328
  2. FLUDARABINE [Suspect]
     Active Substance: FLUDARABINE PHOSPHATE
     Indication: Lymphodepletion
     Dosage: 61.8 MG
     Route: 041
     Dates: start: 20230323, end: 20230325
  3. CYCLOPHOSPHAMIDE [Suspect]
     Active Substance: CYCLOPHOSPHAMIDE
     Indication: Lymphodepletion
     Dosage: 1000 MG
     Route: 041
     Dates: start: 20230323, end: 20230325
  4. ZANUBRUTINIB [Concomitant]
     Active Substance: ZANUBRUTINIB
     Indication: Non-Hodgkin^s lymphoma
     Dosage: ACCUMULATED DOSE 1840MG, TREATMENT CYCLE WAS UNKNOWN
     Route: 048
     Dates: start: 20230321, end: 20230328
  5. ZANUBRUTINIB [Concomitant]
     Active Substance: ZANUBRUTINIB
     Dosage: ACCUMULATED DOSE AND TREATMENT CYCLE WERE UNKNOWN
     Route: 048
     Dates: start: 20230329

REACTIONS (15)
  - Systemic inflammatory response syndrome [Not Recovered/Not Resolved]
  - Pneumonia [Not Recovered/Not Resolved]
  - Cytokine release syndrome [Recovered/Resolved]
  - Chest discomfort [Recovered/Resolved]
  - White blood cell count decreased [Recovered/Resolved]
  - Lymphocyte count decreased [Recovered/Resolved]
  - Cytokine increased [Not Recovered/Not Resolved]
  - Asthenia [Recovered/Resolved]
  - Neutrophil count decreased [Recovered/Resolved]
  - C-reactive protein increased [Recovered/Resolved]
  - Hypoalbuminaemia [Recovered/Resolved]
  - Anaemia [Recovered/Resolved]
  - Blood immunoglobulin G decreased [Not Recovered/Not Resolved]
  - Alanine aminotransferase increased [Not Recovered/Not Resolved]
  - Aspartate aminotransferase increased [Not Recovered/Not Resolved]

NARRATIVE: CASE EVENT DATE: 20230328
